FAERS Safety Report 5245847-7 (Version None)
Quarter: 2007Q1

REPORT INFORMATION
  Report Type: 
  Country: None (occurrence: None)
  Receive Date: 20070216
  Receipt Date: 20070201
  Transmission Date: 20070707
  Serious: Yes (Death, Hospitalization)
  Sender: FDA-Public Use
  Company Number: 2007000218

PATIENT
  Age: 76 Year
  Sex: Female

DRUGS (10)
  1. TARCEVA [Suspect]
     Dosage: 150 MG (QD), ORAL
     Route: 048
     Dates: start: 20060915, end: 20070116
  2. HYDROCHLOROTHIAZIDE [Concomitant]
  3. METOPROLOL TARTRATE [Concomitant]
  4. LISINOPRIL [Concomitant]
  5. TEMAZEPAM [Concomitant]
  6. GEMFIBROZIL [Concomitant]
  7. PROTONIX [Concomitant]
  8. VICODIN [Concomitant]
  9. ATIVAN [Concomitant]
  10. LEVAQUIN [Concomitant]

REACTIONS (14)
  - ABNORMAL BEHAVIOUR [None]
  - ACUTE HEPATIC FAILURE [None]
  - ASTHENIA [None]
  - CHEST PAIN [None]
  - CONFUSIONAL STATE [None]
  - DEHYDRATION [None]
  - DYSPNOEA [None]
  - FEEDING DISORDER [None]
  - HYDROCEPHALUS [None]
  - LETHARGY [None]
  - MALAISE [None]
  - PAIN [None]
  - PLEURAL EFFUSION [None]
  - RENAL FAILURE [None]
